FAERS Safety Report 8157580-2 (Version None)
Quarter: 2012Q1

REPORT INFORMATION
  Report Type: 
  Country: None (occurrence: None)
  Receive Date: 20120222
  Receipt Date: 20111007
  Transmission Date: 20120608
  Serious: No
  Sender: FDA-Public Use
  Company Number: US-ASTRAZENECA-2011SE60821

PATIENT
  Sex: Male

DRUGS (15)
  1. FLEXERIL [Concomitant]
  2. OMNARIS [Concomitant]
  3. AMBIEN [Concomitant]
  4. NEXIUM [Concomitant]
     Route: 048
  5. MYCOPHENOLATE MOFETIL (CELLCEPT) [Concomitant]
  6. LOTREL [Concomitant]
  7. VALIUM [Concomitant]
  8. BETASERON [Concomitant]
  9. VICODIN [Concomitant]
  10. BITALIN [Concomitant]
  11. ATENOLOL [Suspect]
     Route: 065
  12. DURAGESIC-50 [Concomitant]
  13. BACLOFEN [Concomitant]
  14. GABAPENTIN [Concomitant]
  15. ZANTAC [Concomitant]

REACTIONS (2)
  - DRUG HYPERSENSITIVITY [None]
  - DRUG INTOLERANCE [None]
